FAERS Safety Report 7062496-9 (Version None)
Quarter: 2010Q4

REPORT INFORMATION
  Report Type: 
  Country: None (occurrence: None)
  Receive Date: 20101026
  Receipt Date: 20091120
  Transmission Date: 20110411
  Serious: No
  Sender: FDA-Public Use
  Company Number: US-PFIZER INC-2009278853

PATIENT
  Sex: Female
  Weight: 46.712 kg

DRUGS (9)
  1. LIPITOR [Suspect]
     Indication: CORONARY ARTERY OCCLUSION
     Dosage: 40 MG, 1X/DAY
     Route: 048
     Dates: start: 20051129
  2. LISINOPRIL [Concomitant]
     Indication: HEART RATE DECREASED
     Dosage: 5 MG, 1X/DAY
     Route: 048
  3. ACETYLSALICYLIC ACID [Concomitant]
     Dosage: 81 MG, 1X/DAY
     Route: 048
  4. ATENOLOL [Concomitant]
     Indication: HEART RATE DECREASED
     Dosage: 12.5 MG, 1X/DAY
     Route: 048
     Dates: start: 20051129
  5. LACTOBACILLUS ACIDOPHILUS [Concomitant]
     Dosage: UNK
     Route: 048
  6. FISH OIL [Concomitant]
     Dosage: 1000 MG, 2X/DAY
     Route: 048
     Dates: start: 20070101
  7. CALCIUM CITRATE [Concomitant]
     Dosage: UNK
     Route: 048
     Dates: start: 20070101
  8. LUTEIN [Concomitant]
     Dosage: 15 MG, 1X/DAY
     Route: 048
     Dates: start: 20090801
  9. ASCORBIC ACID [Concomitant]
     Dosage: 250 MG, 1X/DAY
     Route: 048

REACTIONS (3)
  - CHANGE OF BOWEL HABIT [None]
  - HYPOTHYROIDISM [None]
  - MUSCLE SPASMS [None]
